FAERS Safety Report 23774789 (Version 1)
Quarter: 2024Q2

REPORT INFORMATION
  Report Type: Spontaneous
  Country: FR (occurrence: None)
  Receive Date: 20240423
  Receipt Date: 20240423
  Transmission Date: 20240715
  Serious: Yes (Disabling)
  Sender: FDA-Public Use
  Company Number: 2024A091904

PATIENT
  Age: 78 Year
  Sex: Female
  Weight: 70 kg

DRUGS (1)
  1. LYNPARZA [Suspect]
     Active Substance: OLAPARIB
     Indication: Ovarian cancer
     Dosage: 400 MG/DAY
     Route: 048
     Dates: start: 202001

REACTIONS (1)
  - Corticobasal degeneration [Not Recovered/Not Resolved]

NARRATIVE: CASE EVENT DATE: 20230601
